FAERS Safety Report 9901194 (Version 2)
Quarter: 2015Q2

REPORT INFORMATION
  Report Type: Report from Study
  Country: CN (occurrence: CN)
  Receive Date: 20140217
  Receipt Date: 20150529
  Transmission Date: 20150821
  Serious: Yes (Hospitalization, Other)
  Sender: FDA-Public Use
  Company Number: CH-ASTELLAS-2014US001461

PATIENT
  Age: 63 Year
  Sex: Female

DRUGS (1)
  1. ERLOTINIB [Suspect]
     Active Substance: ERLOTINIB
     Indication: NON-SMALL CELL LUNG CANCER
     Route: 048
     Dates: start: 20130614

REACTIONS (4)
  - Vomiting [Unknown]
  - Discomfort [Unknown]
  - Motion sickness [Unknown]
  - Shock [Unknown]

NARRATIVE: CASE EVENT DATE: 20140127
